FAERS Safety Report 13688137 (Version 12)
Quarter: 2019Q4

REPORT INFORMATION
  Report Type: Spontaneous
  Country: US (occurrence: US)
  Receive Date: 20170626
  Receipt Date: 20191015
  Transmission Date: 20200122
  Serious: Yes (Other)
  Sender: FDA-Public Use
  Company Number: US-PFIZER INC-2017276014

PATIENT
  Age: 81 Year
  Sex: Female
  Weight: 61 kg

DRUGS (2)
  1. XELJANZ XR [Suspect]
     Active Substance: TOFACITINIB CITRATE
     Indication: RHEUMATOID ARTHRITIS
     Dosage: 11 MG, DAILY
  2. OSTEO BI-FLEX [Concomitant]
     Active Substance: CHONDROITIN SULFATE A\GLUCOSAMINE
     Indication: BONE PAIN
     Dosage: UNK

REACTIONS (14)
  - Bone density abnormal [Unknown]
  - Abdominal pain upper [Unknown]
  - Spinal stenosis [Unknown]
  - Peripheral swelling [Not Recovered/Not Resolved]
  - Inflammation [Not Recovered/Not Resolved]
  - Dizziness [Unknown]
  - Corneal disorder [Unknown]
  - Macular degeneration [Unknown]
  - Memory impairment [Unknown]
  - Blindness [Unknown]
  - Weight increased [Unknown]
  - Glaucoma [Unknown]
  - Drug ineffective [Unknown]
  - Asthenia [Unknown]
